FAERS Safety Report 8609375-0 (Version None)
Quarter: 2012Q3

REPORT INFORMATION
  Report Type: 
  Country: None (occurrence: None)
  Receive Date: 20120821
  Receipt Date: 20120814
  Transmission Date: 20120928
  Serious: No
  Sender: FDA-Public Use
  Company Number: US-BAYER-2012-085916

PATIENT

DRUGS (2)
  1. ALEVE (CAPLET) [Suspect]
     Indication: HEADACHE
     Dosage: 2 DF, UNK
  2. EXCEDRIN [ACETYLSALICYLIC ACID,CAFFEINE,PARACETAMOL,SALICYLAMIDE] [Suspect]
     Indication: HEADACHE
     Dosage: 1 DF, UNK

REACTIONS (1)
  - HEADACHE [None]
